FAERS Safety Report 17880910 (Version 1)
Quarter: 2020Q2

REPORT INFORMATION
  Report Type: Spontaneous
  Country: US (occurrence: US)
  Receive Date: 20200610
  Receipt Date: 20200610
  Transmission Date: 20200714
  Serious: Yes (Other)
  Sender: FDA-Public Use
  Company Number: US-PFIZER INC-2020225482

PATIENT
  Sex: Male

DRUGS (2)
  1. PHENYTOIN. [Suspect]
     Active Substance: PHENYTOIN
     Dosage: 100 MG, 2X/DAY (ONE IN THE MORNING AND ONE IN THE NIGHT)
  2. KEPPRA [Suspect]
     Active Substance: LEVETIRACETAM
     Dosage: UNK

REACTIONS (8)
  - Dysarthria [Unknown]
  - Headache [Unknown]
  - Confusional state [Unknown]
  - Blood pressure abnormal [Unknown]
  - Drooling [Unknown]
  - Head discomfort [Unknown]
  - Neoplasm malignant [Unknown]
  - Disturbance in attention [Unknown]
